FAERS Safety Report 8943648 (Version 1)
Quarter: 2012Q4

REPORT INFORMATION
  Report Type: 
  Country: IT (occurrence: IT)
  Receive Date: 20121204
  Receipt Date: 20121204
  Transmission Date: 20130627
  Serious: Yes (Other)
  Sender: FDA-Public Use
  Company Number: IT-PFIZER INC-2012302939

PATIENT
  Age: 73 Year
  Sex: Female

DRUGS (1)
  1. ATORVASTATINE PFIZER [Suspect]
     Indication: HYPERCHOLESTEROLAEMIA
     Dosage: 40 mg, daily
     Route: 048
     Dates: start: 20121123, end: 20121124

REACTIONS (1)
  - Tongue oedema [Recovering/Resolving]
